FAERS Safety Report 20758271 (Version 1)
Quarter: 2022Q2

REPORT INFORMATION
  Report Type: Spontaneous
  Country: US (occurrence: US)
  Receive Date: 20220427
  Receipt Date: 20220427
  Transmission Date: 20220721
  Serious: No
  Sender: FDA-Public Use
  Company Number: US-BIOGEN-2022BI01117359

PATIENT
  Sex: Female

DRUGS (1)
  1. TECFIDERA [Suspect]
     Active Substance: DIMETHYL FUMARATE
     Indication: Multiple sclerosis
     Route: 065

REACTIONS (19)
  - Vitamin D decreased [Unknown]
  - Temperature intolerance [Unknown]
  - Frustration tolerance decreased [Unknown]
  - Vitreous floaters [Unknown]
  - Cough [Unknown]
  - Fatigue [Unknown]
  - Hypokinesia [Unknown]
  - Immune system disorder [Unknown]
  - Dry skin [Unknown]
  - Vertigo [Recovered/Resolved]
  - Pain [Recovered/Resolved]
  - Depression [Recovered/Resolved]
  - Dehydration [Recovered/Resolved]
  - Diplopia [Recovered/Resolved]
  - Dizziness [Recovered/Resolved]
  - Muscle strain [Recovered/Resolved]
  - Feeling hot [Unknown]
  - Erythema [Unknown]
  - Pruritus [Recovered/Resolved]

NARRATIVE: CASE EVENT DATE: 20150101
